FAERS Safety Report 8408901 (Version 3)
Quarter: 2012Q4

REPORT INFORMATION
  Report Type: Report from Study
  Country: FR (occurrence: FR)
  Receive Date: 20120216
  Receipt Date: 20121108
  Transmission Date: 20130627
  Serious: Yes (Hospitalization)
  Sender: FDA-Public Use
  Company Number: FR-SANOFI-AVENTIS-2012SA008416

PATIENT
  Age: 74 Year
  Sex: Female
  Weight: 54 kg

DRUGS (6)
  1. DOCETAXEL [Suspect]
     Indication: HER-2 POSITIVE BREAST CANCER
     Route: 042
     Dates: start: 20120124
  2. TRASTUZUMAB [Suspect]
     Indication: HER-2 POSITIVE BREAST CANCER
     Route: 042
     Dates: start: 20120124
  3. PERTUZUMAB [Suspect]
     Indication: HER-2 POSITIVE BREAST CANCER
     Route: 042
     Dates: start: 20120124
  4. LEVOTHYROX [Concomitant]
     Dates: start: 2005
  5. STRUCTUM [Concomitant]
     Dates: start: 2000
  6. ACETAMINOPHEN [Concomitant]
     Dosage: dose: 1 in 1 as required
     Dates: start: 2000

REACTIONS (2)
  - Hepatocellular injury [Recovering/Resolving]
  - Neutropenia [Recovered/Resolved]
